FAERS Safety Report 19185363 (Version 1)
Quarter: 2021Q2

REPORT INFORMATION
  Report Type: Spontaneous
  Country: US (occurrence: US)
  Receive Date: 20210427
  Receipt Date: 20210427
  Transmission Date: 20210717
  Serious: No
  Sender: FDA-Public Use
  Company Number: US-MYLANLABS-2021M1021846

PATIENT
  Sex: Female
  Weight: 54 kg

DRUGS (1)
  1. ESTRADIOL TRANSDERMAL SYSTEM [Suspect]
     Active Substance: ESTRADIOL
     Indication: HORMONE REPLACEMENT THERAPY
     Dosage: 0.025 MILLIGRAM, QD (TWICE WEEKLY)
     Route: 062
     Dates: end: 2021

REACTIONS (2)
  - Application site pruritus [Recovering/Resolving]
  - Application site urticaria [Recovering/Resolving]

NARRATIVE: CASE EVENT DATE: 2021
